FAERS Safety Report 4381665-X (Version None)
Quarter: 2004Q2

REPORT INFORMATION
  Report Type: 
  Country: None (occurrence: None)
  Receive Date: 20040615
  Receipt Date: 20040524
  Transmission Date: 20050107
  Serious: No
  Sender: FDA-Public Use
  Company Number: B0333941A

PATIENT
  Sex: 0

DRUGS (1)
  1. THIOGUANINE [Suspect]
     Indication: CROHN'S DISEASE
     Dosage: UNK/SEE DOSAGE TEXT/UNKNOWN
     Route: 065

REACTIONS (1)
  - PANCREATITIS [None]
